FAERS Safety Report 23838665 (Version 1)
Quarter: 2024Q2

REPORT INFORMATION
  Report Type: Spontaneous
  Country: US (occurrence: US)
  Receive Date: 20240509
  Receipt Date: 20240509
  Transmission Date: 20240716
  Serious: No
  Sender: FDA-Public Use
  Company Number: US-Nobelpharma America, LLC-NPA-2024-00707

PATIENT
  Age: 4 Year
  Sex: Female
  Weight: 16 kg

DRUGS (3)
  1. HYFTOR [Suspect]
     Active Substance: SIROLIMUS
     Indication: Angiofibroma
     Dosage: BID
     Route: 003
     Dates: start: 20240318
  2. TOPIRAMATE [Concomitant]
     Active Substance: TOPIRAMATE
  3. Na citrate citric acid [Concomitant]

REACTIONS (3)
  - Chlorine sensitivity [Unknown]
  - Product dose omission issue [None]
  - Off label use [None]

NARRATIVE: CASE EVENT DATE: 20240301
